FAERS Safety Report 21555795 (Version 2)
Quarter: 2022Q4

REPORT INFORMATION
  Report Type: Spontaneous
  Country: US (occurrence: US)
  Receive Date: 20221104
  Receipt Date: 20221125
  Transmission Date: 20230112
  Serious: Yes (Hospitalization)
  Sender: FDA-Public Use
  Company Number: US-TEVA-2022-US-2822792

PATIENT
  Age: 59 Year
  Sex: Male

DRUGS (1)
  1. AMIODARONE [Suspect]
     Active Substance: AMIODARONE
     Indication: Ventricular tachycardia
     Route: 065
     Dates: start: 2017

REACTIONS (4)
  - Hyperthyroidism [Unknown]
  - Ventricular tachycardia [Recovered/Resolved]
  - Thyrotoxic crisis [Unknown]
  - Cardiac arrest [Unknown]
